FAERS Safety Report 6124766-8 (Version None)
Quarter: 2009Q1

REPORT INFORMATION
  Report Type: 
  Country: None (occurrence: None)
  Receive Date: 20090319
  Receipt Date: 20090311
  Transmission Date: 20090719
  Serious: Yes (Life-Threatening)
  Sender: FDA-Public Use
  Company Number: JP-TYCO HEALTHCARE/MALLINCKRODT-T200900658

PATIENT
  Age: 71 Year
  Sex: Male

DRUGS (7)
  1. OPTIRAY 300 [Suspect]
     Indication: COMPUTERISED TOMOGRAM
     Dosage: 100 ML, SINGLE
     Route: 042
     Dates: start: 20090311, end: 20090311
  2. NICORANDIL [Concomitant]
     Indication: PRINZMETAL ANGINA
     Dosage: 5 MG, QID
     Route: 048
  3. ISOSORBIDE MONONITRATE [Concomitant]
     Indication: PRINZMETAL ANGINA
     Dosage: 20 MG, BID
     Route: 048
  4. DILTIAZEM HYDROCHLORIDE [Concomitant]
     Indication: PRINZMETAL ANGINA
     Dosage: 100 MG, BID
     Route: 048
  5. ENALAPRIL MALEATE [Concomitant]
     Indication: PRINZMETAL ANGINA
     Dosage: 2.5 MG, QD
     Route: 048
  6. WARFARIN POTASSIUM [Concomitant]
     Indication: PRINZMETAL ANGINA
     Dosage: 3.5 MG, QD
     Route: 048
  7. DIGOXIN [Concomitant]
     Indication: PRINZMETAL ANGINA
     Dosage: 0.125 MG, QD
     Route: 048

REACTIONS (1)
  - ANAPHYLACTIC SHOCK [None]
